FAERS Safety Report 13599514 (Version 2)
Quarter: 2017Q4

REPORT INFORMATION
  Report Type: Report from Study
  Country: US (occurrence: US)
  Receive Date: 20170531
  Receipt Date: 20171017
  Transmission Date: 20180320
  Serious: Yes (Hospitalization, Other)
  Sender: FDA-Public Use
  Company Number: US-B.I. PHARMACEUTICALS,INC./RIDGEFIELD-2017-BI-024850

PATIENT
  Age: 69 Year
  Sex: Female
  Weight: 72.4 kg

DRUGS (6)
  1. DOCETAXEL. [Suspect]
     Active Substance: DOCETAXEL
     Indication: NON-SMALL CELL LUNG CANCER
     Route: 065
  2. BIBF 1120 [Suspect]
     Active Substance: NINTEDANIB
     Dosage: REDUCED AFTER FOR C2D1 TO 150MG
     Route: 065
  3. CISPLATIN. [Suspect]
     Active Substance: CISPLATIN
     Indication: NON-SMALL CELL LUNG CANCER
     Route: 065
  4. CISPLATIN. [Suspect]
     Active Substance: CISPLATIN
     Dosage: REDUCED 25% FOR C2D1
     Route: 065
  5. DOCETAXEL. [Suspect]
     Active Substance: DOCETAXEL
     Dosage: REDUCED 25% FOR C2D1
     Route: 065
  6. BIBF 1120 [Suspect]
     Active Substance: NINTEDANIB
     Indication: NON-SMALL CELL LUNG CANCER
     Route: 065

REACTIONS (11)
  - Diarrhoea [Recovered/Resolved]
  - Gastrointestinal disorder [Recovered/Resolved]
  - Vomiting [Recovered/Resolved]
  - Sepsis [Recovered/Resolved]
  - Hyperglycaemia [Recovered/Resolved]
  - Abdominal pain [Recovered/Resolved]
  - Haematochezia [Recovered/Resolved]
  - Nausea [Recovered/Resolved]
  - Lipase increased [Recovered/Resolved]
  - Dehydration [Recovered/Resolved]
  - Diarrhoea [Not Recovered/Not Resolved]

NARRATIVE: CASE EVENT DATE: 20170423
